FAERS Safety Report 16526379 (Version 3)
Quarter: 2019Q3

REPORT INFORMATION
  Report Type: Spontaneous
  Country: CA (occurrence: CA)
  Receive Date: 20190703
  Receipt Date: 20190807
  Transmission Date: 20191004
  Serious: Yes (Other)
  Sender: FDA-Public Use
  Company Number: CA-PFIZER INC-2019276512

PATIENT
  Age: 10 Year
  Sex: Male

DRUGS (5)
  1. METHOTREXATE SODIUM. [Suspect]
     Active Substance: METHOTREXATE SODIUM
     Indication: BURKITT^S LYMPHOMA STAGE III
     Dosage: 15 MG, (15 MG ON DAY 1)
     Route: 037
  2. HYDROCORTISONE. [Suspect]
     Active Substance: HYDROCORTISONE
     Indication: BURKITT^S LYMPHOMA STAGE III
     Dosage: 15 MG, (15 MG ON DAY 1)
     Route: 037
  3. VINCRISTINE SULFATE. [Suspect]
     Active Substance: VINCRISTINE SULFATE
     Indication: BURKITT^S LYMPHOMA STAGE III
     Dosage: 1 MG/M2, UNK, (ON DAY 1)
     Route: 042
  4. PREDNISONE. [Suspect]
     Active Substance: PREDNISONE
     Indication: BURKITT^S LYMPHOMA STAGE III
     Dosage: 30 MG/M2, (PREDNISONE 30 MG/M2/DOSE P.O. B.I.D. ? 14 DOSES ON DAYS 1, 2, 3, 4, 5, 6, AND 7)
     Route: 048
  5. CYCLOPHOSPHAMIDE. [Suspect]
     Active Substance: CYCLOPHOSPHAMIDE
     Indication: BURKITT^S LYMPHOMA STAGE III
     Dosage: 300 MG/M2, (300 MG/M2 I.V. OVER 30 MINUTES ON DAY 1)
     Route: 042

REACTIONS (1)
  - Tumour lysis syndrome [Unknown]
